FAERS Safety Report 13579253 (Version 1)
Quarter: 2017Q2

REPORT INFORMATION
  Report Type: Spontaneous
  Country: US (occurrence: US)
  Receive Date: 20170524
  Receipt Date: 20170524
  Transmission Date: 20170830
  Serious: Yes (Other)
  Sender: FDA-Public Use
  Company Number: None

PATIENT
  Age: 32 Year
  Sex: Female
  Weight: 59.02 kg

DRUGS (1)
  1. TIOCONAZOLE, MAX [Suspect]
     Active Substance: TIOCONAZOLE
     Indication: PRURITUS
     Route: 067

REACTIONS (4)
  - Vulvovaginal swelling [None]
  - Hypersensitivity [None]
  - Emotional distress [None]
  - Pain [None]

NARRATIVE: CASE EVENT DATE: 20170522
